FAERS Safety Report 6685032-5 (Version None)
Quarter: 2010Q2

REPORT INFORMATION
  Report Type: 
  Country: None (occurrence: None)
  Receive Date: 20100416
  Receipt Date: 20100412
  Transmission Date: 20101027
  Serious: Yes (Death, Hospitalization)
  Sender: FDA-Public Use
  Company Number: A0775118A

PATIENT
  Sex: Male

DRUGS (1)
  1. AVANDIA [Suspect]
     Indication: DIABETES MELLITUS
     Route: 048
     Dates: start: 19990624, end: 20070101

REACTIONS (10)
  - ANXIETY [None]
  - CARDIAC FAILURE CONGESTIVE [None]
  - DEATH [None]
  - DEPRESSION [None]
  - FLUID RETENTION [None]
  - LEG AMPUTATION [None]
  - PAIN [None]
  - PULMONARY OEDEMA [None]
  - QUALITY OF LIFE DECREASED [None]
  - RESPIRATORY FAILURE [None]
